FAERS Safety Report 7087187-X (Version None)
Quarter: 2010Q4

REPORT INFORMATION
  Report Type: 
  Country: None (occurrence: None)
  Receive Date: 20101106
  Receipt Date: 20101102
  Transmission Date: 20110411
  Serious: No
  Sender: FDA-Public Use
  Company Number: US-WYE-H18526710

PATIENT
  Sex: Female
  Weight: 63.56 kg

DRUGS (9)
  1. PREMARIN [Suspect]
     Indication: VULVOVAGINAL DRYNESS
     Route: 067
     Dates: start: 20040101, end: 20050101
  2. PREMARIN [Suspect]
     Dosage: UNKNOWN
     Route: 067
     Dates: start: 20090901
  3. VITAMINS [Concomitant]
  4. FISH OIL, HYDROGENATED [Concomitant]
  5. ASCORBIC ACID [Concomitant]
  6. CALCIUM [Concomitant]
  7. VITAMIN D [Concomitant]
  8. FEXOFENADINE HCL [Concomitant]
  9. ACETYLSALICYLIC ACID [Concomitant]

REACTIONS (11)
  - ALLERGY TO CHEMICALS [None]
  - APPLICATION SITE PAIN [None]
  - DRUG INTERACTION [None]
  - DRUG WITHDRAWAL SYNDROME [None]
  - DRY SKIN [None]
  - EXFOLIATIVE RASH [None]
  - EYELID OEDEMA [None]
  - RASH [None]
  - RASH ERYTHEMATOUS [None]
  - RASH PAPULAR [None]
  - VAGINITIS BACTERIAL [None]
